FAERS Safety Report 13726801 (Version 8)
Quarter: 2019Q4

REPORT INFORMATION
  Report Type: Spontaneous
  Country: US (occurrence: US)
  Receive Date: 20170706
  Receipt Date: 20191216
  Transmission Date: 20200122
  Serious: Yes (Other)
  Sender: FDA-Public Use
  Company Number: US-PFIZER INC-2017291499

PATIENT
  Age: 33 Year
  Sex: Female

DRUGS (5)
  1. LYRICA [Suspect]
     Active Substance: PREGABALIN
     Indication: PAIN
     Dosage: 150 MG, 2X/DAY
     Route: 048
     Dates: start: 201508, end: 20190116
  2. LYRICA [Suspect]
     Active Substance: PREGABALIN
     Indication: OSTEOMYELITIS
     Dosage: 150 MG, 3X/DAY
     Route: 048
  3. LYRICA [Suspect]
     Active Substance: PREGABALIN
     Indication: MUSCULOSKELETAL DISORDER
  4. LYRICA [Suspect]
     Active Substance: PREGABALIN
     Indication: NEURALGIA
     Dosage: 150 MG, UNK
     Route: 048
  5. LYRICA [Suspect]
     Active Substance: PREGABALIN
     Indication: CONNECTIVE TISSUE DISORDER

REACTIONS (11)
  - Diarrhoea [Unknown]
  - Drug dependence [Unknown]
  - Chills [Unknown]
  - Malaise [Unknown]
  - Vomiting [Unknown]
  - Depression [Unknown]
  - Cold sweat [Unknown]
  - Withdrawal syndrome [Unknown]
  - Nausea [Unknown]
  - Crying [Unknown]
  - Tremor [Unknown]
